FAERS Safety Report 11518228 (Version 3)
Quarter: 2016Q1

REPORT INFORMATION
  Report Type: Report from Study
  Country: CN (occurrence: US)
  Receive Date: 20150917
  Receipt Date: 20160329
  Transmission Date: 20160525
  Serious: Yes (Life-Threatening, Hospitalization, Other)
  Sender: FDA-Public Use
  Company Number: US-MDT-ADR-2015-01800

PATIENT
  Age: 63 Year
  Sex: Male

DRUGS (12)
  1. LIORESAL [Suspect]
     Active Substance: BACLOFEN
     Dosage: 5 MG QD
     Route: 037
     Dates: start: 20150420
  2. PLAVIX [Concomitant]
     Active Substance: CLOPIDOGREL BISULFATE
     Dates: start: 20111101
  3. AMILORID/HCTZ [Concomitant]
     Active Substance: AMILORIDE HYDROCHLORIDE\HYDROCHLOROTHIAZIDE
     Dates: start: 20110515
  4. METOPROLOL. [Concomitant]
     Active Substance: METOPROLOL
     Dates: start: 20120215
  5. ACETAMINOPHEN. [Concomitant]
     Active Substance: ACETAMINOPHEN
     Dates: start: 20110515
  6. AMLODIPINE MALEATE [Concomitant]
     Active Substance: AMLODIPINE MALEATE
     Dates: start: 20110515
  7. AMOXICILLIN TRIHYDRATE [Concomitant]
     Active Substance: AMOXICILLIN
     Dates: start: 20150515
  8. LIPITOR [Concomitant]
     Active Substance: ATORVASTATIN CALCIUM
     Dates: start: 20110515
  9. HYDRALAZINE [Concomitant]
     Active Substance: HYDRALAZINE HYDROCHLORIDE
     Dates: start: 20110515
  10. ARMOUR THYROID [Concomitant]
     Active Substance: THYROID, PORCINE
     Dates: start: 20050215
  11. LISINOPRIL DEHYDRATE [Concomitant]
     Active Substance: LISINOPRIL
     Dates: start: 20150115
  12. ASPIRIN. [Concomitant]
     Active Substance: ASPIRIN
     Dates: start: 20110515

REACTIONS (15)
  - Muscle spasticity [Unknown]
  - Chills [Unknown]
  - Hydronephrosis [Unknown]
  - Sepsis [Recovered/Resolved]
  - Cholelithiasis [Recovered/Resolved]
  - Computerised tomogram abdomen abnormal [Recovered/Resolved]
  - Ureterolithiasis [Recovered/Resolved]
  - Pyrexia [Unknown]
  - Bacterial sepsis [Unknown]
  - Urinary tract infection [Unknown]
  - Diverticulum intestinal [Recovered/Resolved]
  - Culture urine positive [Unknown]
  - Bacteraemia [Unknown]
  - Nephrolithiasis [Unknown]
  - Pneumonia aspiration [Recovered/Resolved]
